FAERS Safety Report 11966764 (Version 4)
Quarter: 2016Q1

REPORT INFORMATION
  Report Type: Spontaneous
  Country: DZ (occurrence: DZ)
  Receive Date: 20160127
  Receipt Date: 20160217
  Transmission Date: 20160526
  Serious: Yes (Death, Life-Threatening, Hospitalization, Other)
  Sender: FDA-Public Use
  Company Number: DZ-ABBVIE-16K-003-1544271-00

PATIENT
  Age: 25 Year
  Sex: Male
  Weight: 35 kg

DRUGS (1)
  1. HUMIRA [Suspect]
     Active Substance: ADALIMUMAB
     Indication: CROHN^S DISEASE
     Route: 058
     Dates: start: 20151030, end: 201511

REACTIONS (7)
  - Histiocytosis haematophagic [Fatal]
  - Cytopenia [Fatal]
  - Disseminated tuberculosis [Fatal]
  - Pleural effusion [Fatal]
  - Splenomegaly [Fatal]
  - Hepatomegaly [Fatal]
  - Ascites [Fatal]

NARRATIVE: CASE EVENT DATE: 201511
